FAERS Safety Report 19853388 (Version 1)
Quarter: 2021Q3

REPORT INFORMATION
  Report Type: Spontaneous
  Country: US (occurrence: US)
  Receive Date: 20210919
  Receipt Date: 20210919
  Transmission Date: 20211014
  Serious: No
  Sender: FDA-Public Use
  Company Number: US-ASTRAZENECA-2021A708923

PATIENT
  Sex: Female

DRUGS (1)
  1. LYNPARZA [Suspect]
     Active Substance: OLAPARIB
     Indication: OVARIAN CANCER
     Route: 048

REACTIONS (6)
  - Dysstasia [Recovering/Resolving]
  - Feeling abnormal [Recovered/Resolved]
  - Insurance issue [Recovered/Resolved]
  - Product dose omission issue [Recovered/Resolved]
  - Lethargy [Recovering/Resolving]
  - Swelling [Recovering/Resolving]
